FAERS Safety Report 7389184-3 (Version None)
Quarter: 2011Q2

REPORT INFORMATION
  Report Type: 
  Country: None (occurrence: None)
  Receive Date: 20110401
  Receipt Date: 20110331
  Transmission Date: 20111010
  Serious: Yes (Other)
  Sender: FDA-Public Use
  Company Number: A0920853A

PATIENT
  Age: 59 Year
  Sex: Female

DRUGS (1)
  1. WALGREENS NICOTINE TRANSDERMAL SYSTEM PATCH CLEAR, 21MG [Suspect]
     Indication: SMOKING CESSATION THERAPY
     Route: 062

REACTIONS (6)
  - CELLULITIS [None]
  - NONSPECIFIC REACTION [None]
  - SKIN DISCOLOURATION [None]
  - PHLEBITIS [None]
  - CONDITION AGGRAVATED [None]
  - INFLAMMATION [None]
